FAERS Safety Report 7410293-4 (Version None)
Quarter: 2011Q2

REPORT INFORMATION
  Report Type: 
  Country: None (occurrence: None)
  Receive Date: 20110412
  Receipt Date: 20110404
  Transmission Date: 20111010
  Serious: Yes (Other)
  Sender: FDA-Public Use
  Company Number: JP-B.I. PHARMACEUTICALS,INC./RIDGEFIELD-2011-BP-05724YA

PATIENT
  Sex: Male

DRUGS (3)
  1. BETHANECHOL CHLORIDE [Concomitant]
     Dosage: 1 G
     Route: 048
     Dates: start: 20100402, end: 20110201
  2. VESICARE [Suspect]
     Indication: HYPERTONIC BLADDER
     Dosage: 5 MG
     Route: 048
     Dates: start: 20101207, end: 20110201
  3. HARNAL (TAMSULOSIN) ORODISPERSABLE CR [Suspect]
     Indication: BENIGN PROSTATIC HYPERPLASIA
     Dosage: 0.2 MG
     Route: 048
     Dates: start: 20050922, end: 20110201

REACTIONS (1)
  - URINARY RETENTION [None]
